FAERS Safety Report 6609485-3 (Version None)
Quarter: 2010Q1

REPORT INFORMATION
  Report Type: 
  Country: None (occurrence: None)
  Receive Date: 20100224
  Receipt Date: 20100212
  Transmission Date: 20100710
  Serious: Yes (Life-Threatening, Hospitalization, Disabling)
  Sender: FDA-Public Use
  Company Number: 091210-0001215

PATIENT
  Age: 15 Year
  Sex: Female
  Weight: 42 kg

DRUGS (6)
  1. COSMEGEN [Suspect]
     Indication: RHABDOMYOSARCOMA
     Dosage: 0.63 MG;QD;IV
     Route: 042
     Dates: start: 20091109, end: 20091113
  2. ETOPOSIDE [Suspect]
     Indication: RHABDOMYOSARCOMA
     Dosage: 150 MG;QD;IV
     Route: 042
     Dates: start: 20091109, end: 20091113
  3. IFOMIDE (IFOSFAMIDE) [Suspect]
     Indication: RHABDOMYOSARCOMA
     Dosage: 2400 MG;QD;IV
     Route: 042
     Dates: start: 20091109, end: 20091113
  4. ONCOVIN [Suspect]
     Indication: RHABDOMYOSARCOMA
     Dosage: 2 MG;QW;IV
     Route: 042
     Dates: start: 20091109, end: 20091119
  5. DORMICUM (NITRAZEPAM) [Suspect]
     Indication: VOMITING
     Dosage: 150 MG; IV, 100 MG; ;IV
     Route: 042
     Dates: start: 20091109, end: 20091119
  6. DORMICUM (NITRAZEPAM) [Suspect]
     Indication: VOMITING
     Dosage: 150 MG; IV, 100 MG; ;IV
     Route: 042
     Dates: start: 20091120, end: 20091130

REACTIONS (12)
  - ACTIVITIES OF DAILY LIVING IMPAIRED [None]
  - ALTERED STATE OF CONSCIOUSNESS [None]
  - ANURIA [None]
  - BACTERIAL INFECTION [None]
  - BEDRIDDEN [None]
  - BLOOD CREATININE INCREASED [None]
  - BONE MARROW FAILURE [None]
  - CONTINUOUS HAEMODIAFILTRATION [None]
  - DISSEMINATED INTRAVASCULAR COAGULATION [None]
  - PYREXIA [None]
  - RESPIRATORY FAILURE [None]
  - RHABDOMYOLYSIS [None]
